FAERS Safety Report 12243757 (Version 1)
Quarter: 2016Q2

REPORT INFORMATION
  Report Type: Spontaneous
  Country: FR (occurrence: FR)
  Receive Date: 20160406
  Receipt Date: 20160406
  Transmission Date: 20160815
  Serious: Yes (Hospitalization)
  Sender: FDA-Public Use
  Company Number: FR-SA-2016SA066391

PATIENT
  Age: 63 Year
  Sex: Female

DRUGS (11)
  1. ALLOPURINOL. [Suspect]
     Active Substance: ALLOPURINOL
     Route: 048
     Dates: end: 201602
  2. HAVLANE [Concomitant]
     Active Substance: LOPRAZOLAM
     Dosage: 1/2/DAY
  3. SPAGULAX [Concomitant]
     Active Substance: PLANTAGO OVATA SEED
     Dosage: 3/DAY
  4. CARBOSYMAG /FRA/ [Concomitant]
     Dosage: 3/DAY
  5. XANAX [Concomitant]
     Active Substance: ALPRAZOLAM
  6. ECONAZOLE [Concomitant]
     Active Substance: ECONAZOLE
     Dosage: 1 APPLICATION X2/DAY
  7. CO-APROVEL [Suspect]
     Active Substance: HYDROCHLOROTHIAZIDE\IRBESARTAN
     Route: 048
     Dates: end: 201602
  8. ATORVASTATIN [Concomitant]
     Active Substance: ATORVASTATIN
  9. CETIRIZINE [Concomitant]
     Active Substance: CETIRIZINE HYDROCHLORIDE
     Indication: PRURITUS
  10. AUGMENTIN [Concomitant]
     Active Substance: AMOXICILLIN\CLAVULANATE POTASSIUM
  11. ZANIDIP [Suspect]
     Active Substance: LERCANIDIPINE HYDROCHLORIDE
     Route: 048
     Dates: end: 201602

REACTIONS (1)
  - Henoch-Schonlein purpura [Recovered/Resolved]

NARRATIVE: CASE EVENT DATE: 20160109
